FAERS Safety Report 4392461-1 (Version None)
Quarter: 2004Q3

REPORT INFORMATION
  Report Type: 
  Country: None (occurrence: None)
  Receive Date: 20040702
  Receipt Date: 20040423
  Transmission Date: 20050211
  Serious: Yes (Other)
  Sender: FDA-Public Use
  Company Number: 2004UW04488

PATIENT
  Age: 61 Year
  Sex: Female
  Weight: 101.6057 kg

DRUGS (5)
  1. CRESTOR [Suspect]
     Indication: LIPIDS INCREASED
     Dosage: 10 MG PO
     Route: 048
  2. ZEBETA [Concomitant]
  3. SYNTHROID [Concomitant]
  4. VISTARIL [Concomitant]
  5. LESCOL [Concomitant]

REACTIONS (4)
  - ARTHRALGIA [None]
  - FEELING ABNORMAL [None]
  - MUSCLE TIGHTNESS [None]
  - MYALGIA [None]
